FAERS Safety Report 6140051-2 (Version None)
Quarter: 2009Q2

REPORT INFORMATION
  Report Type: 
  Country: None (occurrence: None)
  Receive Date: 20090401
  Receipt Date: 20090320
  Transmission Date: 20091009
  Serious: Yes (Other)
  Sender: FDA-Public Use
  Company Number: FR-JNJFOC-20090206533

PATIENT
  Age: 75 Year
  Sex: Male

DRUGS (4)
  1. IXPRIM [Suspect]
     Indication: NEURALGIA
     Route: 048
  2. LYRICA [Interacting]
     Indication: NEURALGIA
     Route: 048
  3. SYMBICORT [Concomitant]
     Route: 055
  4. BRICANYL [Concomitant]
     Route: 055

REACTIONS (5)
  - AGITATION [None]
  - DRUG INTERACTION [None]
  - EUPHORIC MOOD [None]
  - HALLUCINATION, VISUAL [None]
  - INSOMNIA [None]
